FAERS Safety Report 17933319 (Version 1)
Quarter: 2020Q2

REPORT INFORMATION
  Report Type: Spontaneous
  Country: BE (occurrence: BE)
  Receive Date: 20200624
  Receipt Date: 20200624
  Transmission Date: 20200714
  Serious: Yes (Death)
  Sender: FDA-Public Use
  Company Number: BE-ROCHE-2627442

PATIENT
  Sex: Female
  Weight: 45 kg

DRUGS (1)
  1. XELODA [Suspect]
     Active Substance: CAPECITABINE
     Indication: COLON CANCER METASTATIC
     Dosage: 2X PAR JOUR
     Route: 048
     Dates: start: 20200530, end: 20200614

REACTIONS (4)
  - Burns second degree [Fatal]
  - Skin exfoliation [Fatal]
  - Mucosal disorder [Fatal]
  - Stomatitis [Fatal]
